FAERS Safety Report 4751171-9 (Version None)
Quarter: 2005Q3

REPORT INFORMATION
  Report Type: 
  Country: None (occurrence: None)
  Receive Date: 20050822
  Receipt Date: 20050822
  Transmission Date: 20060218
  Serious: Yes (Life-Threatening, Hospitalization)
  Sender: FDA-Public Use
  Company Number: None

PATIENT
  Age: 66 Year
  Sex: Female
  Weight: 123 kg

DRUGS (1)
  1. DEPODUR [Suspect]
     Dosage: 15MG  EPI  X 1
     Route: 008
     Dates: start: 20050802, end: 20050808

REACTIONS (2)
  - DELAYED RECOVERY FROM ANAESTHESIA [None]
  - OXYGEN SATURATION DECREASED [None]
